APPROVED DRUG PRODUCT: CLONIDINE HYDROCHLORIDE
Active Ingredient: CLONIDINE HYDROCHLORIDE
Strength: 5MG/10ML (0.5MG/ML)
Dosage Form/Route: INJECTABLE;INJECTION
Application: A203167 | Product #002 | TE Code: AP
Applicant: XGEN PHARMACEUTICALS DJB INC
Approved: Oct 29, 2013 | RLD: No | RS: No | Type: RX